FAERS Safety Report 15135740 (Version 1)
Quarter: 2018Q3

REPORT INFORMATION
  Report Type: Spontaneous
  Country: US (occurrence: US)
  Receive Date: 20180712
  Receipt Date: 20180712
  Transmission Date: 20181010
  Serious: No
  Sender: FDA-Public Use
  Company Number: US-GALDERMA-US18011589

PATIENT
  Sex: Female

DRUGS (2)
  1. DIFFERIN GEL [Suspect]
     Active Substance: ADAPALENE
     Indication: PRODUCT USED FOR UNKNOWN INDICATION
     Dosage: 0.1%
     Route: 061
  2. DIFFERIN GEL [Suspect]
     Active Substance: ADAPALENE
     Route: 061

REACTIONS (7)
  - Paraesthesia [Unknown]
  - Pain of skin [Unknown]
  - Scratch [Unknown]
  - Inappropriate schedule of drug administration [Recovered/Resolved]
  - Skin exfoliation [Unknown]
  - Acne [Unknown]
  - Erythema [Unknown]
